FAERS Safety Report 26074923 (Version 1)
Quarter: 2025Q4

REPORT INFORMATION
  Report Type: Spontaneous
  Country: CN (occurrence: CN)
  Receive Date: 20251121
  Receipt Date: 20251121
  Transmission Date: 20260118
  Serious: Yes (Hospitalization, Other)
  Sender: AIPING PHARMACEUTICAL
  Company Number: CN-AIPING-2025AILIT00192

PATIENT
  Age: 26 Year
  Sex: Female

DRUGS (2)
  1. METHIMAZOLE [Suspect]
     Active Substance: METHIMAZOLE
     Indication: Hyperthyroidism
     Route: 065
     Dates: start: 20241008, end: 202411
  2. Adenine phosphate [Concomitant]
     Indication: Hyperthyroidism
     Route: 065
     Dates: start: 20241008

REACTIONS (4)
  - Leukopenia [Recovered/Resolved]
  - Lymphopenia [Recovered/Resolved]
  - Febrile neutropenia [Recovered/Resolved]
  - Granulocytopenia [Recovered/Resolved]

NARRATIVE: CASE EVENT DATE: 20241108
